FAERS Safety Report 4598812-7 (Version None)
Quarter: 2005Q1

REPORT INFORMATION
  Report Type: 
  Country: None (occurrence: None)
  Receive Date: 20050301
  Receipt Date: 20050215
  Transmission Date: 20050727
  Serious: Yes (Other)
  Sender: FDA-Public Use
  Company Number: 2005032512

PATIENT
  Sex: Male

DRUGS (3)
  1. VIAGRA [Suspect]
     Indication: ERECTILE DYSFUNCTION
     Dosage: ORAL
     Route: 048
  2. FUROSEMIDE [Concomitant]
  3. ALLOPURINOL [Concomitant]

REACTIONS (7)
  - ARTHRALGIA [None]
  - BACK PAIN [None]
  - DISEASE RECURRENCE [None]
  - MYOCARDIAL INFARCTION [None]
  - TESTICULAR DISORDER [None]
  - TESTICULAR SWELLING [None]
  - WEIGHT INCREASED [None]
